FAERS Safety Report 7555617-2 (Version None)
Quarter: 2011Q2

REPORT INFORMATION
  Report Type: 
  Country: None (occurrence: None)
  Receive Date: 20110617
  Receipt Date: 20020215
  Transmission Date: 20111010
  Serious: Yes (Hospitalization)
  Sender: FDA-Public Use
  Company Number: PHBS2002VE16285

PATIENT
  Age: 39 Year
  Sex: Female

DRUGS (3)
  1. ENALAPRIL MALEATE [Concomitant]
     Indication: HYPERTENSION
  2. STARLIX [Suspect]
     Indication: BLOOD GLUCOSE INCREASED
     Dosage: 120 MG, QD
     Route: 048
  3. GLUCOPHAGE [Concomitant]
     Dosage: 1 DF, TID

REACTIONS (1)
  - SEPSIS [None]
